FAERS Safety Report 13843581 (Version 1)
Quarter: 2017Q3

REPORT INFORMATION
  Report Type: Spontaneous
  Country: CA (occurrence: CA)
  Receive Date: 20170808
  Receipt Date: 20170808
  Transmission Date: 20171127
  Serious: Yes (Hospitalization, Other)
  Sender: FDA-Public Use
  Company Number: CA-PFIZER INC-2017337927

PATIENT
  Age: 56 Year
  Sex: Female

DRUGS (1)
  1. IBRANCE [Suspect]
     Active Substance: PALBOCICLIB
     Indication: BREAST CANCER METASTATIC
     Dosage: 125 MG, CYCLIC (DIE (1X/DAY) FOR 21 DAYS ON 30 (SO 21 DAYS ON AND 9 DAYS OFF MEDICATION) )
     Dates: start: 20170606

REACTIONS (3)
  - Hip fracture [Unknown]
  - Thrombocytopenia [Unknown]
  - Fall [Unknown]
